FAERS Safety Report 10993982 (Version 3)
Quarter: 2015Q2

REPORT INFORMATION
  Report Type: Report from Study
  Country: CA (occurrence: None)
  Receive Date: 20150403
  Receipt Date: 20150421
  Transmission Date: 20150821
  Serious: Yes (Hospitalization)
  Sender: FDA-Public Use
  Company Number: 2015CA002767

PATIENT
  Sex: Male

DRUGS (4)
  1. LANSOPRAZOLE. [Concomitant]
     Active Substance: LANSOPRAZOLE
  2. IRBESARTAN. [Concomitant]
     Active Substance: IRBESARTAN
  3. PRADAX (DABIGATRAN ETEXILATE MESILATE) [Concomitant]
  4. ELIGARD [Suspect]
     Active Substance: LEUPROLIDE ACETATE
     Indication: PROSTATE CANCER
     Route: 030
     Dates: start: 20070405

REACTIONS (5)
  - Cholelithiasis [None]
  - Incorrect route of drug administration [None]
  - Liver disorder [None]
  - Gastrooesophageal reflux disease [None]
  - Hot flush [None]
